FAERS Safety Report 9714419 (Version 2)
Quarter: 2014Q4

REPORT INFORMATION
  Report Type: Spontaneous
  Country: ES (occurrence: DE)
  Receive Date: 20131126
  Receipt Date: 20141003
  Transmission Date: 20150529
  Serious: No
  Sender: FDA-Public Use
  Company Number: DE-FRI-1000051749

PATIENT
  Age: 69 Year
  Sex: Female
  Weight: 67 kg

DRUGS (4)
  1. LISINOPRIL TAD [Concomitant]
     Indication: HYPERTENSION
     Dosage: 10MG
  2. OMEPRAZOL AL T [Concomitant]
     Indication: GASTRITIS
     Dosage: 20MG
  3. ACLIDINIUM [Suspect]
     Active Substance: ACLIDINIUM BROMIDE
     Indication: CHRONIC OBSTRUCTIVE PULMONARY DISEASE
     Dosage: 644 MICROG
     Dates: start: 20131022, end: 20131105
  4. AMLODIPINE AL 5 MG / 10 MG [Concomitant]
     Indication: HYPERTENSION
     Dosage: 5MG

REACTIONS (4)
  - Tachycardia [Recovered/Resolved]
  - Abdominal pain [Recovered/Resolved]
  - Vision blurred [Recovered/Resolved]
  - Headache [Recovered/Resolved]

NARRATIVE: CASE EVENT DATE: 20131104
